FAERS Safety Report 21361458 (Version 1)
Quarter: 2022Q3

REPORT INFORMATION
  Report Type: Spontaneous
  Country: CN (occurrence: None)
  Receive Date: 20220921
  Receipt Date: 20220921
  Transmission Date: 20221026
  Serious: Yes (Other)
  Sender: FDA-Public Use
  Company Number: CN-Eisai Medical Research-EC-2022-124101

PATIENT
  Age: 65 Year
  Sex: Male
  Weight: 79 kg

DRUGS (4)
  1. LENVIMA [Suspect]
     Active Substance: LENVATINIB
     Indication: Gallbladder cancer
     Route: 048
     Dates: start: 20220905, end: 20220913
  2. TISLELIZUMAB [Concomitant]
     Active Substance: TISLELIZUMAB
     Indication: Gallbladder cancer
     Route: 041
     Dates: start: 20220904, end: 20220904
  3. GEMCITABINE [Concomitant]
     Active Substance: GEMCITABINE
     Indication: Gallbladder cancer
     Dosage: FREQUENCY UNKNOWN
     Route: 041
     Dates: start: 20220905, end: 20220912
  4. CISPLATIN [Concomitant]
     Active Substance: CISPLATIN
     Indication: Gallbladder cancer
     Dosage: FREQUENCY UNKNOWN
     Route: 041
     Dates: start: 20220905, end: 20220907

REACTIONS (1)
  - Blood pressure increased [Recovering/Resolving]

NARRATIVE: CASE EVENT DATE: 20220913
